FAERS Safety Report 18173524 (Version 3)
Quarter: 2020Q4

REPORT INFORMATION
  Report Type: Report from Study
  Country: None (occurrence: US)
  Receive Date: 20200820
  Receipt Date: 20201111
  Transmission Date: 20210113
  Serious: Yes (Hospitalization, Other)
  Sender: FDA-Public Use
  Company Number: US-ABBVIE-20K-163-3530884-00

PATIENT
  Sex: Female
  Weight: 69.92 kg

DRUGS (4)
  1. CREON [Suspect]
     Active Substance: PANCRELIPASE AMYLASE\PANCRELIPASE LIPASE\PANCRELIPASE PROTEASE
     Route: 048
  2. CREON [Suspect]
     Active Substance: PANCRELIPASE AMYLASE\PANCRELIPASE LIPASE\PANCRELIPASE PROTEASE
     Indication: PANCREATIC FAILURE
     Dosage: 2 EVERY MEAL, 1 WITH A SNACK
     Route: 048
     Dates: start: 2011
  3. CREON [Suspect]
     Active Substance: PANCRELIPASE AMYLASE\PANCRELIPASE LIPASE\PANCRELIPASE PROTEASE
     Route: 048
  4. INSULIN [Concomitant]
     Active Substance: INSULIN NOS
     Indication: DIABETES MELLITUS

REACTIONS (10)
  - Pancreatectomy [Unknown]
  - Pancreas transplant rejection [Unknown]
  - Hypoglycaemia [Unknown]
  - Flatulence [Recovering/Resolving]
  - Haemorrhage [Unknown]
  - Pancreatic failure [Recovering/Resolving]
  - Aortoenteric fistula [Unknown]
  - Abdominal distension [Recovering/Resolving]
  - Feeding disorder [Recovering/Resolving]
  - Diarrhoea [Recovering/Resolving]

NARRATIVE: CASE EVENT DATE: 2011
